FAERS Safety Report 21824622 (Version 1)
Quarter: 2023Q1

REPORT INFORMATION
  Report Type: Spontaneous
  Country: US (occurrence: US)
  Receive Date: 20230105
  Receipt Date: 20230105
  Transmission Date: 20230417
  Serious: Yes (Hospitalization)
  Sender: FDA-Public Use
  Company Number: US-TAKEDA-2023TUS000905

PATIENT
  Sex: Male

DRUGS (1)
  1. MOTEGRITY [Suspect]
     Active Substance: PRUCALOPRIDE SUCCINATE
     Indication: Impaired gastric emptying
     Dosage: UNK
     Route: 065
     Dates: start: 2019

REACTIONS (3)
  - Hospitalisation [Unknown]
  - Inability to afford medication [Unknown]
  - Product use in unapproved indication [Unknown]
